FAERS Safety Report 8168302-3 (Version None)
Quarter: 2012Q1

REPORT INFORMATION
  Report Type: 
  Country: None (occurrence: None)
  Receive Date: 20120227
  Receipt Date: 20120216
  Transmission Date: 20120608
  Serious: Yes (Hospitalization, Other)
  Sender: FDA-Public Use
  Company Number: US-MERCK-1112USA01773

PATIENT
  Age: 64 Year
  Sex: Female

DRUGS (6)
  1. FOSAMAX [Suspect]
     Route: 048
     Dates: start: 20080201, end: 20080601
  2. FOSAMAX [Suspect]
     Indication: OSTEOPOROSIS
     Route: 048
     Dates: start: 20040101, end: 20080201
  3. ALENDRONATE SODIUM [Suspect]
     Route: 048
     Dates: start: 20100201
  4. FOSAMAX PLUS D [Suspect]
     Indication: OSTEOPOROSIS
     Route: 048
     Dates: start: 20000101, end: 20100401
  5. FOSAMAX [Suspect]
     Route: 048
     Dates: start: 20091201
  6. ALENDRONATE SODIUM [Suspect]
     Indication: OSTEOPOROSIS
     Route: 048
     Dates: start: 20080701, end: 20091101

REACTIONS (20)
  - VARICOSE VEIN [None]
  - BRONCHITIS [None]
  - APPENDIX DISORDER [None]
  - GALLBLADDER DISORDER [None]
  - ASTHMA [None]
  - NEURODERMATITIS [None]
  - WRIST FRACTURE [None]
  - LOW TURNOVER OSTEOPATHY [None]
  - BREAST CANCER [None]
  - HEPATIC STEATOSIS [None]
  - PNEUMONIA [None]
  - CELLULITIS [None]
  - ABDOMINAL PAIN [None]
  - ROAD TRAFFIC ACCIDENT [None]
  - MUSCLE DISORDER [None]
  - TENOSYNOVITIS STENOSANS [None]
  - PERIARTHRITIS [None]
  - FEMUR FRACTURE [None]
  - SINUS TACHYCARDIA [None]
  - GASTROOESOPHAGEAL REFLUX DISEASE [None]
